FAERS Safety Report 11991899 (Version 1)
Quarter: 2016Q1

REPORT INFORMATION
  Report Type: Spontaneous
  Country: US (occurrence: None)
  Receive Date: 20160202
  Receipt Date: 20160202
  Transmission Date: 20160526
  Serious: No
  Sender: FDA-Public Use
  Company Number: None

PATIENT
  Age: 66 Year
  Sex: Female
  Weight: 88.45 kg

DRUGS (13)
  1. BIOTIN [Concomitant]
     Active Substance: BIOTIN
  2. METFORMIN [Concomitant]
     Active Substance: METFORMIN HYDROCHLORIDE
  3. ZYVOX [Suspect]
     Active Substance: LINEZOLID
     Indication: POST PROCEDURAL INFECTION
     Dosage: 1 PILL TWICE DAILY BY MOUTH
     Route: 048
     Dates: start: 20160125, end: 20160126
  4. VICTOZA [Concomitant]
     Active Substance: LIRAGLUTIDE
  5. FISH OIL [Concomitant]
     Active Substance: FISH OIL
  6. GLIMIPIRIDE [Concomitant]
     Active Substance: GLIMEPIRIDE
  7. JUICE PLUS [Concomitant]
     Active Substance: DIETARY SUPPLEMENT
  8. ZYVOX [Suspect]
     Active Substance: LINEZOLID
     Indication: BACTERIAL INFECTION
     Dosage: 1 PILL TWICE DAILY BY MOUTH
     Route: 048
     Dates: start: 20160125, end: 20160126
  9. SYNTHROID [Concomitant]
     Active Substance: LEVOTHYROXINE SODIUM
  10. VITAMIN D [Concomitant]
     Active Substance: CHOLECALCIFEROL
  11. LYRICA [Concomitant]
     Active Substance: PREGABALIN
  12. CYMBALTA [Concomitant]
     Active Substance: DULOXETINE HYDROCHLORIDE
  13. CLONAZEPAM. [Concomitant]
     Active Substance: CLONAZEPAM

REACTIONS (6)
  - Nausea [None]
  - Abdominal discomfort [None]
  - Vision blurred [None]
  - Depressed level of consciousness [None]
  - Asthenia [None]
  - Malaise [None]
